FAERS Safety Report 20361099 (Version 1)
Quarter: 2022Q1

REPORT INFORMATION
  Report Type: Spontaneous
  Country: US (occurrence: US)
  Receive Date: 20220121
  Receipt Date: 20220121
  Transmission Date: 20220423
  Serious: No
  Sender: FDA-Public Use
  Company Number: US-SA-SAC20220119000225

PATIENT
  Sex: Female

DRUGS (16)
  1. DUPIXENT [Suspect]
     Active Substance: DUPILUMAB
     Indication: Dermatitis atopic
     Dosage: 300 MG, QOW
     Route: 058
  2. NUCALA [Concomitant]
     Active Substance: MEPOLIZUMAB
  3. CELLCEPT [Concomitant]
     Active Substance: MYCOPHENOLATE MOFETIL
  4. SYMBICORT [Concomitant]
     Active Substance: BUDESONIDE\FORMOTEROL FUMARATE DIHYDRATE
     Dosage: 160-4.5MCG HFA AER AD
  5. PROAIR HFA [Concomitant]
     Active Substance: ALBUTEROL SULFATE
     Dosage: HFA AER AD
  6. LIDODERM [Concomitant]
     Active Substance: LIDOCAINE
  7. ESTRADIOL [Concomitant]
     Active Substance: ESTRADIOL
  8. CALCIUM\CHOLECALCIFEROL [Concomitant]
     Active Substance: CALCIUM\CHOLECALCIFEROL
     Dosage: 600 MG-500 ER
  9. NEURONTIN [Concomitant]
     Active Substance: GABAPENTIN
  10. ZYRTEC [Concomitant]
     Active Substance: CETIRIZINE HYDROCHLORIDE
  11. WELLBUTRIN SR [Concomitant]
     Active Substance: BUPROPION HYDROCHLORIDE
  12. CYMBALTA [Concomitant]
     Active Substance: DULOXETINE HYDROCHLORIDE
  13. RAYOS [Concomitant]
     Active Substance: PREDNISONE
  14. THEOPHYLLINE [Concomitant]
     Active Substance: THEOPHYLLINE
     Dosage: 100MG
  15. RITUXAN [Concomitant]
     Active Substance: RITUXIMAB
     Dosage: 100MG
  16. VITAMINS NOS [Concomitant]
     Active Substance: VITAMINS

REACTIONS (2)
  - Pruritus [Unknown]
  - Dry skin [Unknown]
